FAERS Safety Report 6602887-0 (Version None)
Quarter: 2010Q1

REPORT INFORMATION
  Report Type: 
  Country: None (occurrence: None)
  Receive Date: 20100226
  Receipt Date: 20100212
  Transmission Date: 20100710
  Serious: Yes (Hospitalization)
  Sender: FDA-Public Use
  Company Number: US-ELI_LILLY_AND_COMPANY-US200908001496

PATIENT
  Sex: Female

DRUGS (5)
  1. FORTEO [Suspect]
     Indication: OSTEOPOROSIS
     Dosage: 20 UG, DAILY (1/D)
     Dates: start: 20090801, end: 20090801
  2. FORTEO [Suspect]
     Dosage: UNK, UNK
     Dates: start: 20090908
  3. TIAZAC /00489702/ [Concomitant]
     Indication: BLOOD PRESSURE
  4. PRAVACHOL [Concomitant]
     Indication: BLOOD CHOLESTEROL
  5. VITAMINS NOS [Concomitant]

REACTIONS (3)
  - ANXIETY [None]
  - ARTHROPATHY [None]
  - INJECTION SITE ERYTHEMA [None]
